FAERS Safety Report 23969261 (Version 1)
Quarter: 2024Q2

REPORT INFORMATION
  Report Type: Spontaneous
  Country: FR (occurrence: FR)
  Receive Date: 20240612
  Receipt Date: 20240612
  Transmission Date: 20240716
  Serious: Yes (Death, Other)
  Sender: FDA-Public Use
  Company Number: FR-ANIPHARMA-2024-FR-000093

PATIENT
  Age: 84 Year
  Sex: Female

DRUGS (3)
  1. CANDESARTAN [Suspect]
     Active Substance: CANDESARTAN
     Indication: Hypertension
     Route: 048
  2. EZETIMIBE [Suspect]
     Active Substance: EZETIMIBE
     Route: 048
  3. MODERNA COVID-19 VACCINE [Suspect]
     Active Substance: ELASOMERAN
     Dosage: DOSE TEXT: 1 DOSAGE FORM IN 2 TOTAL, D1; COVID-19 VACCINE MODERNA 0.20 MG/ML, / DOSE TEXT: 1
     Route: 030
     Dates: start: 20211215

REACTIONS (2)
  - Breast cancer [Fatal]
  - Hepatic lesion [Unknown]

NARRATIVE: CASE EVENT DATE: 20210614
